FAERS Safety Report 5563904-2 (Version None)
Quarter: 2007Q4

REPORT INFORMATION
  Report Type: 
  Country: None (occurrence: None)
  Receive Date: 20071217
  Receipt Date: 20071005
  Transmission Date: 20080405
  Serious: No
  Sender: FDA-Public Use
  Company Number: US-ASTRAZENECA-2007UW23290

PATIENT
  Age: 53 Year
  Sex: Female
  Weight: 64.9 kg

DRUGS (6)
  1. CRESTOR [Suspect]
     Indication: MIXED HYPERLIPIDAEMIA
     Route: 048
  2. LEXAPRO [Concomitant]
  3. KLONOPIN [Concomitant]
  4. IBUPROFEN [Concomitant]
  5. SEROQUEL [Concomitant]
  6. PRILOSEC OTC [Concomitant]

REACTIONS (2)
  - BLADDER DISORDER [None]
  - URINE COLOUR ABNORMAL [None]
